FAERS Safety Report 17362742 (Version 2)
Quarter: 2020Q1

REPORT INFORMATION
  Report Type: Spontaneous
  Country: ES (occurrence: ES)
  Receive Date: 20200203
  Receipt Date: 20200213
  Transmission Date: 20200409
  Serious: Yes (Death, Hospitalization, Other)
  Sender: FDA-Public Use
  Company Number: ES-CELGENEUS-ESP-20191108523

PATIENT
  Age: 75 Year
  Sex: Female
  Weight: 53 kg

DRUGS (12)
  1. LORAZEPAM. [Concomitant]
     Active Substance: LORAZEPAM
     Indication: PRODUCT USED FOR UNKNOWN INDICATION
     Route: 065
  2. ENASIDENIB [Suspect]
     Active Substance: ENASIDENIB
     Indication: GLIOMA
  3. AMLODIPINE [Concomitant]
     Active Substance: AMLODIPINE BESYLATE
     Indication: PRODUCT USED FOR UNKNOWN INDICATION
     Route: 065
  4. ENASIDENIB [Suspect]
     Active Substance: ENASIDENIB
     Indication: ACUTE MYELOID LEUKAEMIA
     Route: 048
     Dates: start: 20191101, end: 20191203
  5. ENASIDENIB [Suspect]
     Active Substance: ENASIDENIB
     Indication: TUMOUR LYSIS SYNDROME
  6. ADOVIR [Concomitant]
     Indication: PRODUCT USED FOR UNKNOWN INDICATION
     Route: 065
  7. HYDREA [Concomitant]
     Active Substance: HYDROXYUREA
     Indication: HYPERLEUKOCYTOSIS
     Route: 065
  8. ENASIDENIB [Suspect]
     Active Substance: ENASIDENIB
     Indication: CHRONIC MYELOMONOCYTIC LEUKAEMIA
  9. RANITIDINE. [Concomitant]
     Active Substance: RANITIDINE
     Indication: PRODUCT USED FOR UNKNOWN INDICATION
     Route: 065
  10. ENASIDENIB [Suspect]
     Active Substance: ENASIDENIB
     Indication: MYELODYSPLASTIC SYNDROME
  11. LEVOFLOXACIN. [Concomitant]
     Active Substance: LEVOFLOXACIN
     Indication: PRODUCT USED FOR UNKNOWN INDICATION
     Route: 065
  12. HYDREA [Concomitant]
     Active Substance: HYDROXYUREA
     Indication: PROPHYLAXIS

REACTIONS (3)
  - Differentiation syndrome [Unknown]
  - Hyperleukocytosis [Unknown]
  - Cerebral haemorrhage [Fatal]

NARRATIVE: CASE EVENT DATE: 20191114
